FAERS Safety Report 7258477-2 (Version None)
Quarter: 2011Q1

REPORT INFORMATION
  Report Type: 
  Country: None (occurrence: None)
  Receive Date: 20110129
  Receipt Date: 20100821
  Transmission Date: 20110831
  Serious: No
  Sender: FDA-Public Use
  Company Number: US-ABBOTT-10P-163-0665404-00

PATIENT
  Age: 32 Year
  Sex: Male

DRUGS (2)
  1. HUMIRA [Suspect]
     Dosage: 80 MG LOADING DOSE
     Dates: start: 20100822, end: 20100822
  2. HUMIRA [Suspect]
     Indication: CROHN'S DISEASE
     Dosage: 80MG LOADING DOSE
     Dates: start: 20100821, end: 20100821

REACTIONS (4)
  - FEELING ABNORMAL [None]
  - FATIGUE [None]
  - DIZZINESS [None]
  - GAIT DISTURBANCE [None]
